FAERS Safety Report 21234680 (Version 1)
Quarter: 2022Q3

REPORT INFORMATION
  Report Type: Spontaneous
  Country: US (occurrence: US)
  Receive Date: 20220820
  Receipt Date: 20220820
  Transmission Date: 20221027
  Serious: No
  Sender: FDA-Public Use
  Company Number: US-AUROBINDO-AUR-APL-2021-043442

PATIENT
  Sex: Male
  Weight: 76.2 kg

DRUGS (1)
  1. BELEODAQ [Suspect]
     Active Substance: BELINOSTAT
     Indication: Product used for unknown indication
     Dosage: 1890 MILLIGRAM, DAILY
     Route: 042

REACTIONS (1)
  - Product dose omission issue [Unknown]
